FAERS Safety Report 5147674-8 (Version None)
Quarter: 2006Q4

REPORT INFORMATION
  Report Type: 
  Country: None (occurrence: None)
  Receive Date: 20061110
  Receipt Date: 20061031
  Transmission Date: 20070319
  Serious: Yes (Hospitalization)
  Sender: FDA-Public Use
  Company Number: US-KINGPHARMUSA00001-K200601364

PATIENT
  Age: 81 Year
  Sex: Female

DRUGS (6)
  1. ALTACE [Suspect]
     Route: 048
  2. MIXTARD /00634701/ [Concomitant]
     Route: 058
  3. TAHOR [Concomitant]
     Route: 048
  4. DURAGESIC-100 [Concomitant]
     Route: 062
  5. CONTRAMAL [Concomitant]
     Route: 048
  6. NSAID'S [Suspect]

REACTIONS (8)
  - BLOOD CREATININE INCREASED [None]
  - BLOOD UREA INCREASED [None]
  - DEHYDRATION [None]
  - HYPOGLYCAEMIA [None]
  - MALAISE [None]
  - RENAL FAILURE ACUTE [None]
  - RENAL FAILURE CHRONIC [None]
  - RENAL VESSEL DISORDER [None]
